FAERS Safety Report 6286368-2 (Version None)
Quarter: 2009Q3

REPORT INFORMATION
  Report Type: 
  Country: None (occurrence: None)
  Receive Date: 20090724
  Receipt Date: 20090714
  Transmission Date: 20100115
  Serious: Yes (Hospitalization)
  Sender: FDA-Public Use
  Company Number: 8049052

PATIENT
  Sex: Male
  Weight: 122.7 kg

DRUGS (1)
  1. CIMZIA [Suspect]
     Indication: RHEUMATOID ARTHRITIS
     Dosage: 400 MG SC
     Route: 058
     Dates: start: 20040101

REACTIONS (4)
  - BRONCHITIS [None]
  - CLOSTRIDIAL INFECTION [None]
  - NASOPHARYNGITIS [None]
  - SINUSITIS [None]
